FAERS Safety Report 7834134-6 (Version None)
Quarter: 2011Q4

REPORT INFORMATION
  Report Type: 
  Country: None (occurrence: None)
  Receive Date: 20111024
  Receipt Date: 20111011
  Transmission Date: 20120403
  Serious: Yes (Other)
  Sender: FDA-Public Use
  Company Number: PHHY2011NL89880

PATIENT
  Sex: Female

DRUGS (1)
  1. GLEEVEC [Suspect]
     Dosage: 600 MG, UNK

REACTIONS (3)
  - PATHOLOGICAL FRACTURE [None]
  - MYALGIA [None]
  - VITAMIN D DECREASED [None]
